FAERS Safety Report 8382692-8 (Version None)
Quarter: 2012Q2

REPORT INFORMATION
  Report Type: 
  Country: None (occurrence: None)
  Receive Date: 20120524
  Receipt Date: 20120224
  Transmission Date: 20120825
  Serious: No
  Sender: FDA-Public Use
  Company Number: US-ALLERGAN-1202634US

PATIENT
  Sex: Male

DRUGS (1)
  1. LASTACAFT [Suspect]
     Indication: PRODUCT USED FOR UNKNOWN INDICATION
     Dosage: UNK
     Route: 047
     Dates: start: 20120223

REACTIONS (1)
  - INSTILLATION SITE ABNORMAL SENSATION [None]
